FAERS Safety Report 14954802 (Version 1)
Quarter: 2018Q2

REPORT INFORMATION
  Report Type: Spontaneous
  Country: DK (occurrence: DK)
  Receive Date: 20180530
  Receipt Date: 20180530
  Transmission Date: 20180711
  Serious: Yes (Other)
  Sender: FDA-Public Use
  Company Number: DK-TEVA-2018-DK-898205

PATIENT
  Age: 76 Year
  Sex: Male

DRUGS (2)
  1. ALLOPURINOL. [Concomitant]
     Active Substance: ALLOPURINOL
     Indication: GOUT
     Dosage: 200 MILLIGRAM DAILY; STYRKE: 100 MG.
     Route: 048
     Dates: start: 20161111
  2. TAMSULOSIN [Suspect]
     Active Substance: TAMSULOSIN
     Indication: BENIGN PROSTATIC HYPERPLASIA
     Dosage: .4 MILLIGRAM DAILY; STYRKE: 0,4 MG.
     Route: 048
     Dates: start: 20180303, end: 20180320

REACTIONS (3)
  - Hyperkalaemia [Recovering/Resolving]
  - Eye swelling [Recovered/Resolved]
  - Muscle swelling [Recovering/Resolving]

NARRATIVE: CASE EVENT DATE: 20180303
